FAERS Safety Report 13260264 (Version 1)
Quarter: 2017Q1

REPORT INFORMATION
  Report Type: Spontaneous
  Country: US (occurrence: US)
  Receive Date: 20170222
  Receipt Date: 20170222
  Transmission Date: 20170428
  Serious: Yes (Death, Hospitalization, Other)
  Sender: FDA-Public Use
  Company Number: US-SA-2017SA028631

PATIENT
  Age: 69 Year
  Sex: Male
  Weight: 88 kg

DRUGS (25)
  1. CARBAMAZEPINE. [Suspect]
     Active Substance: CARBAMAZEPINE
     Indication: TRIGEMINAL NEURALGIA
     Route: 048
  2. TYLENOL WITH CODEINE [Concomitant]
     Active Substance: ACETAMINOPHEN\CODEINE PHOSPHATE
     Route: 048
  3. VITAMIN D [Concomitant]
     Active Substance: CHOLECALCIFEROL
  4. ALTACE [Concomitant]
     Active Substance: RAMIPRIL
  5. MELATONIN [Concomitant]
     Active Substance: MELATONIN
     Route: 048
  6. CRESTOR [Concomitant]
     Active Substance: ROSUVASTATIN CALCIUM
  7. BACLOFEN. [Concomitant]
     Active Substance: BACLOFEN
     Route: 048
  8. TERAZOSIN [Concomitant]
     Active Substance: TERAZOSIN\TERAZOSIN HYDROCHLORIDE
     Route: 048
  9. MISOPROSTOL. [Concomitant]
     Active Substance: MISOPROSTOL
     Route: 048
  10. PROAIR HFA [Concomitant]
     Active Substance: ALBUTEROL SULFATE
     Route: 055
  11. VOLTAREN [Concomitant]
     Active Substance: DICLOFENAC SODIUM
  12. PROZAC [Concomitant]
     Active Substance: FLUOXETINE HYDROCHLORIDE
  13. HYDRALAZINE HYDROCHLORIDE. [Concomitant]
     Active Substance: HYDRALAZINE HYDROCHLORIDE
  14. ASPIRIN. [Concomitant]
     Active Substance: ASPIRIN
  15. CELEXA [Concomitant]
     Active Substance: CITALOPRAM HYDROBROMIDE
  16. LEMTRADA [Suspect]
     Active Substance: ALEMTUZUMAB
     Route: 042
  17. CARBAMAZEPINE. [Suspect]
     Active Substance: CARBAMAZEPINE
     Indication: TRIGEMINAL NEURALGIA
     Route: 048
  18. MECLIZINE HYDROCHLORIDE. [Concomitant]
     Active Substance: MECLIZINE HYDROCHLORIDE
     Route: 048
  19. VITAMIN D3 [Concomitant]
     Active Substance: CHOLECALCIFEROL
     Dosage: 2 IN THE MORNING
     Route: 048
  20. HYDROXYZINE HYDROCHLORIDE. [Concomitant]
     Active Substance: HYDROXYZINE HYDROCHLORIDE
     Route: 048
  21. AUBAGIO [Suspect]
     Active Substance: TERIFLUNOMIDE
     Route: 048
     Dates: start: 201511
  22. EFFEXOR [Concomitant]
     Active Substance: VENLAFAXINE HYDROCHLORIDE
  23. ATENOLOL. [Concomitant]
     Active Substance: ATENOLOL
  24. FLOMAX [Concomitant]
     Active Substance: TAMSULOSIN HYDROCHLORIDE
  25. AMPYRA [Suspect]
     Active Substance: DALFAMPRIDINE
     Indication: GAIT DISTURBANCE
     Route: 048
     Dates: start: 2011

REACTIONS (38)
  - Somnolence [Unknown]
  - Weight increased [Unknown]
  - Fatigue [Unknown]
  - Oxygen saturation decreased [Fatal]
  - Urine ketone body present [Unknown]
  - Memory impairment [Unknown]
  - Paraesthesia [Recovering/Resolving]
  - Lung infection [Fatal]
  - Fall [Fatal]
  - Decreased interest [Unknown]
  - Paralysis [Unknown]
  - Urine analysis abnormal [Unknown]
  - Urinary casts [Unknown]
  - Micturition urgency [Unknown]
  - Constipation [Recovering/Resolving]
  - Hypoaesthesia [Unknown]
  - Back pain [Unknown]
  - Head injury [Fatal]
  - Muscular weakness [Unknown]
  - Asthenia [Unknown]
  - Condition aggravated [Fatal]
  - Abasia [Unknown]
  - Decreased appetite [Unknown]
  - Bacteriuria [Unknown]
  - Nitrite urine present [Unknown]
  - Specific gravity urine decreased [Unknown]
  - Trigeminal neuralgia [Unknown]
  - Affective disorder [Unknown]
  - Mobility decreased [Unknown]
  - Diarrhoea [Recovering/Resolving]
  - Protein urine present [Unknown]
  - Neuralgia [Unknown]
  - Urine leukocyte esterase positive [Unknown]
  - Ataxia [Unknown]
  - Pruritus [Unknown]
  - Multiple sclerosis relapse [Unknown]
  - Diplopia [Unknown]
  - Depression [Unknown]

NARRATIVE: CASE EVENT DATE: 201508
